FAERS Safety Report 9559801 (Version 2)
Quarter: 2013Q4

REPORT INFORMATION
  Report Type: Spontaneous
  Country: US (occurrence: US)
  Receive Date: 20130927
  Receipt Date: 20131108
  Transmission Date: 20140711
  Serious: Yes (Disabling, Other)
  Sender: FDA-Public Use
  Company Number: US-PFIZER INC-2013276236

PATIENT
  Age: 70 Year
  Sex: Female
  Weight: 90.7 kg

DRUGS (24)
  1. CELEBREX [Suspect]
     Indication: OSTEOARTHRITIS
     Dosage: 200 MG, 2X/DAY
     Route: 048
     Dates: start: 20110621, end: 201306
  2. CELEBREX [Suspect]
     Indication: PAIN
     Dosage: 200 MG, 2X/DAY
     Route: 048
     Dates: start: 2013
  3. CELEBREX [Suspect]
     Indication: INFLAMMATION
     Dosage: UNK
  4. CHLORTHALIDONE [Concomitant]
     Dosage: 25 MG, ONCE DAILY
     Route: 048
     Dates: start: 20120209
  5. CLONAZEPAM [Concomitant]
     Dosage: 0.5 MG, TWICE DAILY
     Route: 048
     Dates: start: 20100401
  6. DICLOFENAC SODIUM [Concomitant]
     Dosage: 50 MG, TWICE DAILY
     Route: 048
     Dates: start: 20130830
  7. ENALAPRIL MALEATE [Concomitant]
     Dosage: 20 MG, DAILY
     Route: 048
     Dates: start: 20070105
  8. FLUTICASONE PROPIONATE [Concomitant]
     Dosage: 50 MCG/ ACT, 2 SPRAYS IN EACH NOSTRIL ONCE DAILY
     Dates: start: 20120822
  9. GABAPENTIN [Concomitant]
     Dosage: 300 MG, 2 CAPSULES 3 TIMES DAILY
     Route: 048
     Dates: start: 20120822
  10. ACETAMINOPHEN W/HYDROCODONE BITARTRATE [Concomitant]
     Indication: PAIN
     Dosage: HYDROCODONE BITARTRATE 10MG/ PARACETAMOL 500MG, EVERY 4 HOURS AS NEEDED
     Route: 048
     Dates: start: 20121126
  11. JANUVIA [Concomitant]
     Dosage: 100 MG, DAILY
     Route: 048
     Dates: start: 20100818
  12. LIDOCAINE [Concomitant]
     Dosage: 5%, UNK
     Route: 061
     Dates: start: 20130218
  13. LORATADINE [Concomitant]
     Dosage: 10 MG, AS NEEDED
     Route: 048
     Dates: start: 20120822
  14. MONTELUKAST SODIUM [Concomitant]
     Dosage: 10 MG, DAILY
     Route: 048
     Dates: start: 20100112
  15. PANTOPRAZOLE SODIUM [Concomitant]
     Dosage: 40 MG, EVERY DAY
     Route: 048
     Dates: start: 20120529
  16. PIOGLITAZONE HYDROCHLORIDE [Concomitant]
     Dosage: 45 MG, DAILY
     Route: 048
     Dates: start: 20100212
  17. PRAVASTATIN SODIUM [Concomitant]
     Dosage: 40 MG, TWO TABLETS EVERY DAY
     Route: 048
     Dates: start: 20100727
  18. PRO-AIR HFA [Concomitant]
     Dosage: 108 (90 BASE) MCG/ACT 1 TO 2 PUFFS EVERY 4 TO 6 HOURS AS NEEDED
     Route: 055
     Dates: start: 20100825
  19. PROLIA [Concomitant]
     Dosage: 60 MG/ML, EVERY 6 MONTHS
     Route: 058
     Dates: start: 20120207
  20. SYMBICORT [Concomitant]
     Dosage: 160-4.5 MCG/ACT, 2 PUFFS TWICE DAILY
     Route: 055
     Dates: start: 20100112
  21. VITAMIN D [Concomitant]
     Dosage: 50000 IU, TWICE WEEKLY FOR 3 WEEKS THEN ONCE WEEKLY
     Route: 048
     Dates: start: 20100818
  22. ZOVIRAX [Concomitant]
     Dosage: 5%, 3 TIMES DAILY AS DIRECTED
     Route: 061
     Dates: start: 20130423
  23. LEVEMIR FLEX PEN [Concomitant]
     Dosage: 100 UNITS/ML, EVENING MEAL OR AT BEDTIME AS DIRECTED
     Route: 058
     Dates: start: 20130213
  24. LEVEMIR FLEX PEN [Concomitant]
     Dosage: 100 UNITS/ML, 10 UNITS QHS
     Route: 058
     Dates: start: 20111219

REACTIONS (4)
  - Movement disorder [Unknown]
  - Activities of daily living impaired [Unknown]
  - Back disorder [Unknown]
  - Hypertension [Unknown]
